FAERS Safety Report 22038543 (Version 9)
Quarter: 2025Q4

REPORT INFORMATION
  Report Type: Report from Study
  Country: AU (occurrence: AU)
  Receive Date: 20230227
  Receipt Date: 20251209
  Transmission Date: 20260117
  Serious: Yes (Hospitalization, Other)
  Sender: TAKEDA
  Company Number: AU-TAKEDA-2023TUS019532

PATIENT
  Age: 53 Year
  Sex: Female

DRUGS (14)
  1. TEDUGLUTIDE [Suspect]
     Active Substance: TEDUGLUTIDE
     Indication: Short-bowel syndrome
     Dosage: 5 MILLIGRAM, QD
     Dates: start: 20191202, end: 20210921
  2. TEDUGLUTIDE [Suspect]
     Active Substance: TEDUGLUTIDE
     Dosage: 3 MILLIGRAM, QD
     Dates: start: 20210921, end: 20240322
  3. TEDUGLUTIDE [Suspect]
     Active Substance: TEDUGLUTIDE
     Dosage: 2.4 MILLIGRAM, QD
     Dates: start: 20240322, end: 20241029
  4. TEDUGLUTIDE [Suspect]
     Active Substance: TEDUGLUTIDE
     Dosage: 2.45 MILLIGRAM, QD
     Dates: start: 20241030
  5. Magnesium sulfur [Concomitant]
     Indication: Blood magnesium decreased
     Dosage: UNK UNK, SINGLE
     Dates: start: 20220907, end: 20220907
  6. Magnesium sulfur [Concomitant]
     Dosage: UNK UNK, SINGLE
     Dates: start: 20220913, end: 20220913
  7. Tazocin [Concomitant]
     Indication: Cellulitis
     Dosage: 4.5 GRAM, TID
     Dates: start: 20220826, end: 20220829
  8. ADALIMUMAB [Concomitant]
     Active Substance: ADALIMUMAB
     Indication: Crohn^s disease
     Dosage: 40 MILLIGRAM, 1/WEEK
     Dates: start: 2015
  9. AMITRIPTYLINE [Concomitant]
     Active Substance: AMITRIPTYLINE
     Indication: Sleep disorder
     Dosage: 50 MILLIGRAM, QD
  10. BETAMETHASONE DIPROPIONATE [Concomitant]
     Active Substance: BETAMETHASONE DIPROPIONATE
     Indication: Stoma creation
     Dosage: UNK
     Route: 061
  11. CHOLECALCIFEROL [Concomitant]
     Active Substance: CHOLECALCIFEROL
     Indication: Supplementation therapy
     Dosage: 25 MICROGRAM, QD
  12. CODEINE PHOSPHATE [Concomitant]
     Active Substance: CODEINE PHOSPHATE
     Indication: Stoma creation
     Dosage: 30 MILLIGRAM
  13. Desven [Concomitant]
     Indication: Antidepressant therapy
     Dosage: 100 MILLIGRAM, QD
  14. Lopermide [Concomitant]
     Indication: Stoma creation
     Dosage: 2 MILLIGRAM

REACTIONS (3)
  - Infection [Recovered/Resolved]
  - Oesophageal stenosis [Not Recovered/Not Resolved]
  - Vascular device infection [Recovered/Resolved]

NARRATIVE: CASE EVENT DATE: 20230131
